FAERS Safety Report 19749363 (Version 1)
Quarter: 2021Q3

REPORT INFORMATION
  Report Type: Other
  Country: GB (occurrence: GB)
  Receive Date: 20210826
  Receipt Date: 20210826
  Transmission Date: 20211014
  Serious: Yes (Other)
  Sender: FDA-Public Use
  Company Number: GB-MACLEODS PHARMA UK LTD-MAC2021032437

PATIENT

DRUGS (2)
  1. THYROXINE [Concomitant]
     Active Substance: LEVOTHYROXINE
     Indication: ILL-DEFINED DISORDER
     Dosage: UNK
     Route: 065
  2. LEVOFLOXACIN. [Suspect]
     Active Substance: LEVOFLOXACIN
     Indication: INFECTION
     Dosage: 1000 MILLIGRAM
     Route: 048
     Dates: start: 20210811, end: 20210815

REACTIONS (8)
  - Arthralgia [Unknown]
  - Angina pectoris [Recovered/Resolved]
  - Psychotic disorder [Unknown]
  - Adverse drug reaction [Recovered/Resolved]
  - Monoplegia [Recovered/Resolved]
  - Skin haemorrhage [Unknown]
  - Medication error [Unknown]
  - Tendonitis [Unknown]

NARRATIVE: CASE EVENT DATE: 20210811
